FAERS Safety Report 6415886-9 (Version None)
Quarter: 2009Q4

REPORT INFORMATION
  Report Type: 
  Country: None (occurrence: None)
  Receive Date: 20091022
  Receipt Date: 20091012
  Transmission Date: 20100525
  Serious: Yes (Hospitalization)
  Sender: FDA-Public Use
  Company Number: 8053380

PATIENT
  Age: 41 Year
  Sex: Male

DRUGS (8)
  1. KEPPRA [Suspect]
     Indication: B-CELL LYMPHOMA
     Dosage: 2 G /D; PO
     Route: 048
     Dates: start: 20090203, end: 20090717
  2. BARACLUDE [Suspect]
     Indication: INFECTION
     Dosage: 0.5 MG /D; PO
     Route: 048
     Dates: start: 20081202, end: 20090717
  3. BACTRIM [Suspect]
     Indication: PROPHYLAXIS
     Dosage: /D; PO
     Route: 048
     Dates: start: 20081231, end: 20090724
  4. REYATAZ [Concomitant]
  5. ISENTRESS [Concomitant]
  6. METHOTREXATE [Concomitant]
  7. DEPAKENE [Concomitant]
  8. WELLVONE [Concomitant]

REACTIONS (2)
  - HEPATITIS [None]
  - THROMBOCYTOPENIA [None]
